FAERS Safety Report 6995280 (Version 3)
Quarter: 2013Q2

REPORT INFORMATION
  Report Type: Report from Study
  Country: JP (occurrence: JP)
  Receive Date: 20090515
  Receipt Date: 20130405
  Transmission Date: 20140414
  Serious: Yes (Death, Life-Threatening, Other)
  Sender: FDA-Public Use
  Company Number: JP-BRISTOL-MYERS SQUIBB COMPANY-14602635

PATIENT
  Age: 75 Year
  Sex: Male

DRUGS (12)
  1. SPRYCEL [Suspect]
     Indication: CHRONIC MYELOID LEUKAEMIA
     Dosage: 140MG/D
     Route: 048
     Dates: start: 20090327, end: 20090423
  2. PREDONINE [Suspect]
     Indication: CHRONIC MYELOID LEUKAEMIA
     Dosage: 21OCT-22NOV08 UNK:10-14MAR09 UNK: 25MG/D UNK;15MG/D UNK-23APR09
     Route: 048
     Dates: start: 20081021, end: 20090423
  3. ONCOVIN [Suspect]
     Indication: CHRONIC MYELOID LEUKAEMIA
     Dosage: 10MAR09-14MAR09: DOSE -UNK 5DAY; 2MG ON 09APR2009 (ONCE)
     Route: 042
     Dates: start: 20090310, end: 20090409
  4. ACICLOVIR [Concomitant]
     Dates: start: 20090327, end: 20090410
  5. VANCOMYCIN HCL [Concomitant]
     Dates: start: 20090327, end: 20090423
  6. OMEPRAZOLE [Concomitant]
     Dosage: INITIATED ON 06APR09?OMEPRAZOLE SODIUM 22-23APR09.
     Dates: end: 20090406
  7. FUROSEMIDE [Concomitant]
     Dates: end: 20090423
  8. SPIRONOLACTONE [Concomitant]
     Dates: end: 20090423
  9. POTASSIUM CHLORIDE [Concomitant]
     Dates: start: 20090330, end: 20090416
  10. VOGLIBOSE [Concomitant]
     Dates: end: 20090423
  11. FLUCONAZOLE [Concomitant]
     Dates: end: 20090423
  12. IMATINIB MESILATE [Concomitant]
     Dosage: 1DF:200/600MG/DAY
     Route: 048
     Dates: start: 20070926, end: 20090307

REACTIONS (8)
  - Malignant neoplasm progression [Fatal]
  - Gastrointestinal haemorrhage [Fatal]
  - White blood cell count decreased [Not Recovered/Not Resolved]
  - Neutrophil count decreased [Not Recovered/Not Resolved]
  - Platelet count decreased [Not Recovered/Not Resolved]
  - Anaemia [Not Recovered/Not Resolved]
  - Sepsis [Recovering/Resolving]
  - Oedema [Not Recovered/Not Resolved]
